FAERS Safety Report 25268588 (Version 2)
Quarter: 2025Q2

REPORT INFORMATION
  Report Type: Spontaneous
  Country: US (occurrence: US)
  Receive Date: 20250505
  Receipt Date: 20250517
  Transmission Date: 20250717
  Serious: No
  Sender: ROCHE
  Company Number: US-ROCHE-10000268098

PATIENT
  Age: 86 Year
  Sex: Female

DRUGS (19)
  1. XOLAIR [Suspect]
     Active Substance: OMALIZUMAB
     Indication: Asthma
     Route: 058
  2. XOLAIR [Suspect]
     Active Substance: OMALIZUMAB
     Route: 058
  3. ALBUTEROL SU NEB (2.5 MG [Concomitant]
  4. BUSPIRONE HC TAB 5MG [Concomitant]
  5. DESLORATADIN TAB 5MG [Concomitant]
  6. MELATONIN [Concomitant]
     Active Substance: MELATONIN
  7. MUCINEX [Concomitant]
     Active Substance: GUAIFENESIN
  8. PROBIOTICS NOS [Concomitant]
     Active Substance: PROBIOTICS NOS
  9. AZELASTINE [Concomitant]
     Active Substance: AZELASTINE
  10. AZO BLADDER CAP [Concomitant]
  11. BREO ELLIPTA AEP 100-25MC [Concomitant]
  12. CLARINEX [Concomitant]
     Active Substance: DESLORATADINE
  13. ELIQUIS [Concomitant]
     Active Substance: APIXABAN
  14. METOPROLOL [Concomitant]
     Active Substance: METOPROLOL
  15. SINGULAIR [Concomitant]
     Active Substance: MONTELUKAST SODIUM
  16. TYLENOL [Concomitant]
     Active Substance: ACETAMINOPHEN
  17. VITAMIN E [Concomitant]
     Active Substance: .ALPHA.-TOCOPHEROL
  18. IBANDRONATE SODIUM [Concomitant]
     Active Substance: IBANDRONATE SODIUM
  19. LEVOTHYROXINE [Concomitant]
     Active Substance: LEVOTHYROXINE

REACTIONS (4)
  - Product dose omission issue [Unknown]
  - No adverse event [Unknown]
  - Device defective [Unknown]
  - Device failure [Unknown]

NARRATIVE: CASE EVENT DATE: 20250423
